FAERS Safety Report 14287855 (Version 3)
Quarter: 2018Q1

REPORT INFORMATION
  Report Type: Spontaneous
  Country: US (occurrence: US)
  Receive Date: 20171215
  Receipt Date: 20180112
  Transmission Date: 20180509
  Serious: Yes (Hospitalization)
  Sender: FDA-Public Use
  Company Number: US-CELGENEUS-USA-20171203742

PATIENT
  Sex: Female

DRUGS (10)
  1. PREDNISONE. [Concomitant]
     Active Substance: PREDNISONE
     Indication: STRIDOR
     Dosage: 13.8 MILLIGRAM
     Route: 065
     Dates: start: 201710
  2. PEPCID [Concomitant]
     Active Substance: FAMOTIDINE
     Indication: GASTROOESOPHAGEAL REFLUX DISEASE
     Dosage: 4 MILLIGRAM
     Route: 065
     Dates: start: 20170628
  3. NEURONTIN [Concomitant]
     Active Substance: GABAPENTIN
     Indication: PAIN
     Dosage: 5MG AM, 125MG PM
     Route: 065
     Dates: start: 20171029
  4. PULMICORT TURBUHALER [Concomitant]
     Active Substance: BUDESONIDE
     Indication: STRIDOR
     Dosage: 4 MILLILITER
     Route: 065
     Dates: start: 20171005
  5. THALOMID [Suspect]
     Active Substance: THALIDOMIDE
     Indication: EPIDERMOLYSIS BULLOSA
     Dosage: 20 MG IN LIQUID DAILY
     Route: 048
     Dates: start: 20171110, end: 20171210
  6. AUGMENTIN [Concomitant]
     Active Substance: AMOXICILLIN\CLAVULANATE POTASSIUM
     Indication: OESOPHAGEAL HYPOMOTILITY
     Dosage: 1032 MILLIGRAM
     Route: 065
     Dates: start: 20171116, end: 20171201
  7. MORPHINE [Concomitant]
     Active Substance: MORPHINE
     Indication: PAIN
     Dosage: 1.8 MILLIGRAM
     Route: 065
     Dates: start: 201710, end: 20171201
  8. THALOMID [Suspect]
     Active Substance: THALIDOMIDE
     Indication: DRUG ADMINISTERED TO PATIENT OF INAPPROPRIATE AGE
  9. AZITHROMYCIN ANHYDROUS. [Concomitant]
     Active Substance: AZITHROMYCIN ANHYDROUS
     Indication: OESOPHAGEAL HYPOMOTILITY
     Dosage: 48 MILLIGRAM
     Route: 048
     Dates: start: 20171029, end: 20171215
  10. NEXIUM [Concomitant]
     Active Substance: ESOMEPRAZOLE MAGNESIUM
     Indication: GASTROOESOPHAGEAL REFLUX DISEASE
     Dosage: 5 MILLIGRAM
     Route: 065
     Dates: start: 20170720

REACTIONS (3)
  - Abdominal discomfort [Recovering/Resolving]
  - Abdominal distension [Recovering/Resolving]
  - Gastrointestinal hypomotility [Recovering/Resolving]
